FAERS Safety Report 5627948-4 (Version None)
Quarter: 2008Q1

REPORT INFORMATION
  Report Type: 
  Country: None (occurrence: None)
  Receive Date: 20080215
  Receipt Date: 20080204
  Transmission Date: 20080703
  Serious: Yes (Other)
  Sender: FDA-Public Use
  Company Number: US-ROCHE-545502

PATIENT
  Age: 49 Year
  Sex: Female

DRUGS (2)
  1. PEG-INTERFERON A-2A (RO 25-8310) [Suspect]
     Dosage: FORMULATION: PRE-FILLED SYRINGE. PATIENT REPORTED IN WEEK 17 OF TREATMENT.
     Route: 065
     Dates: start: 20071011
  2. RIBAVIRIN [Suspect]
     Dosage: PATIENT REPORTED IN WEEK 17 OF TREATMENT.
     Route: 065
     Dates: start: 20071011

REACTIONS (3)
  - BLOOD PRESSURE INCREASED [None]
  - FACIAL PALSY [None]
  - SPEECH DISORDER [None]
